FAERS Safety Report 10539921 (Version 19)
Quarter: 2017Q4

REPORT INFORMATION
  Report Type: Report from Study
  Country: ES (occurrence: ES)
  Receive Date: 20141024
  Receipt Date: 20171211
  Transmission Date: 20180320
  Serious: Yes (Death, Life-Threatening, Hospitalization)
  Sender: FDA-Public Use
  Company Number: ES-ROCHE-1468611

PATIENT
  Age: 45 Year
  Sex: Male
  Weight: 77 kg

DRUGS (8)
  1. OBINUTUZUMAB. [Suspect]
     Active Substance: OBINUTUZUMAB
     Indication: CHRONIC LYMPHOCYTIC LEUKAEMIA
     Route: 042
     Dates: start: 20140916, end: 20140916
  2. BENDAMUSTINE [Suspect]
     Active Substance: BENDAMUSTINE
     Dosage: MOST RECENT DOSE PRIOR TO EVENT: 17/SEP/2014?PERMANENTLY DISCONTINUED ON 23/SEP/2014
     Route: 042
     Dates: start: 20140917, end: 20140917
  3. DEXAMETHASONE. [Concomitant]
     Active Substance: DEXAMETHASONE
     Indication: PROPHYLAXIS
     Route: 048
     Dates: start: 20140915, end: 20140915
  4. OBINUTUZUMAB. [Suspect]
     Active Substance: OBINUTUZUMAB
     Dosage: MOST RECENT DOSE PRIOR TO EVENT: 17/SEP/2014?PERMANENTLY DISCONTINUED ON 23/SEP/2014
     Route: 042
     Dates: start: 20140917, end: 20140917
  5. DEXAMETHASONE. [Concomitant]
     Active Substance: DEXAMETHASONE
     Route: 042
     Dates: start: 20140916, end: 20140917
  6. PARACETAMOL [Concomitant]
     Active Substance: ACETAMINOPHEN
     Indication: PROPHYLAXIS
     Route: 042
     Dates: start: 20140916, end: 20140917
  7. BENDAMUSTINE [Suspect]
     Active Substance: BENDAMUSTINE
     Indication: CHRONIC LYMPHOCYTIC LEUKAEMIA
     Route: 042
     Dates: start: 20140916, end: 20140916
  8. DEXCLORFENIRAMINA [Concomitant]
     Indication: PROPHYLAXIS
     Route: 042
     Dates: start: 20140916, end: 20140917

REACTIONS (5)
  - Shock haemorrhagic [Not Recovered/Not Resolved]
  - Visceral leishmaniasis [Fatal]
  - Thrombocytopenia [Not Recovered/Not Resolved]
  - Multiple organ dysfunction syndrome [Not Recovered/Not Resolved]
  - Febrile neutropenia [Recovered/Resolved]

NARRATIVE: CASE EVENT DATE: 20140919
